FAERS Safety Report 7988250-9 (Version None)
Quarter: 2011Q4

REPORT INFORMATION
  Report Type: 
  Country: None (occurrence: None)
  Receive Date: 20111216
  Receipt Date: 20110427
  Transmission Date: 20120403
  Serious: No
  Sender: FDA-Public Use
  Company Number: US-ABBOTT-11P-163-0804510-00

PATIENT
  Age: 54 Year
  Sex: Female
  Weight: 50 kg

DRUGS (2)
  1. PROGESTERONE [Suspect]
     Indication: PROGESTIN REPLACEMENT THERAPY
     Dosage: DAILY DOSE:  UNKNOWN, AS USED: 200MG,TAKKING FROM DAY1-12 MONTHLY, SKIP COMON. SKIPING DOSE EVERY MO
     Route: 048
     Dates: start: 20090101
  2. ESTRADIOL [Concomitant]
     Indication: OESTROGEN REPLACEMENT THERAPY
     Dosage: DAILY DOSE:  UNKNOWN, AS USED: 0.035 MILLIGRAM(S)
     Route: 065
     Dates: start: 20090101

REACTIONS (4)
  - PAIN IN EXTREMITY [None]
  - ANXIETY [None]
  - DIZZINESS [None]
  - HYPERHIDROSIS [None]
